FAERS Safety Report 8307488-4 (Version None)
Quarter: 2012Q2

REPORT INFORMATION
  Report Type: 
  Country: None (occurrence: None)
  Receive Date: 20120424
  Receipt Date: 20120417
  Transmission Date: 20120825
  Serious: Yes (Other)
  Sender: FDA-Public Use
  Company Number: US-PFIZER INC-2009201742

PATIENT
  Sex: Female
  Weight: 53.515 kg

DRUGS (12)
  1. TRUSOPT [Suspect]
     Indication: GLAUCOMA
     Dosage: UNK
     Route: 047
     Dates: start: 20060101, end: 20080101
  2. TIMOLOL MALEATE [Suspect]
     Dosage: UNK
     Route: 047
     Dates: start: 20060101, end: 20080101
  3. LOSARTAN [Concomitant]
     Indication: HYPERTENSION
     Dosage: 100 MG, DAILY
     Route: 048
  4. LATANOPROST [Suspect]
     Indication: GLAUCOMA
     Dosage: UNK
     Route: 047
     Dates: start: 20111101, end: 20110101
  5. AVAPRO [Concomitant]
     Indication: HYPERTENSION
     Dosage: UNK
     Route: 048
  6. XALATAN [Suspect]
     Indication: GLAUCOMA
     Dosage: 1 DROP IN EACH EYE ONCE A DAY
     Route: 047
     Dates: start: 20040101
  7. XALATAN [Suspect]
     Dosage: UNK
     Route: 047
     Dates: start: 20080101, end: 20110101
  8. TIMOLOL MALEATE [Suspect]
     Indication: GLAUCOMA
     Dosage: UNK
     Route: 047
     Dates: start: 20060101, end: 20081001
  9. SYNTHROID [Concomitant]
     Indication: THYROID DISORDER
     Dosage: 0.75 UG, DAILY
     Route: 048
  10. XALATAN [Suspect]
     Dosage: 1X/DAY
     Route: 047
     Dates: start: 20111101
  11. ANTIHYPERTENSIVES [Concomitant]
     Dosage: UNK
  12. LEVOTHYROXINE SODIUM [Concomitant]
     Indication: THYROID DISORDER
     Dosage: UNK

REACTIONS (16)
  - HAIR DISORDER [None]
  - INFLUENZA [None]
  - DYSPNOEA [None]
  - GROWTH OF EYELASHES [None]
  - BLINDNESS [None]
  - CHEST DISCOMFORT [None]
  - INTRAOCULAR PRESSURE INCREASED [None]
  - PARALYSIS [None]
  - TINNITUS [None]
  - ALOPECIA [None]
  - EYELID OEDEMA [None]
  - POOR QUALITY DRUG ADMINISTERED [None]
  - THYROID DISORDER [None]
  - PAIN [None]
  - READING DISORDER [None]
  - EYELID IRRITATION [None]
